FAERS Safety Report 5535594-6 (Version None)
Quarter: 2007Q4

REPORT INFORMATION
  Report Type: 
  Country: None (occurrence: None)
  Receive Date: 20071206
  Receipt Date: 20070102
  Transmission Date: 20080405
  Serious: Yes (Hospitalization)
  Sender: FDA-Public Use
  Company Number: US-AMGEN-US205631

PATIENT
  Age: 61 Year
  Sex: Female

DRUGS (2)
  1. ENBREL [Suspect]
     Indication: RHEUMATOID ARTHRITIS
     Route: 065
  2. HYDROXYCHLOROQUINE SULFATE [Concomitant]
     Route: 065

REACTIONS (3)
  - ENDOCARDITIS [None]
  - HAEMORRHAGIC STROKE [None]
  - SEPTIC ARTHRITIS STREPTOBACILLUS [None]
